FAERS Safety Report 4622174-X (Version None)
Quarter: 2005Q1

REPORT INFORMATION
  Report Type: 
  Country: None (occurrence: None)
  Receive Date: 20050329
  Receipt Date: 20050315
  Transmission Date: 20050727
  Serious: Yes (Other)
  Sender: FDA-Public Use
  Company Number: 2005047890

PATIENT
  Age: 13 Year
  Sex: Female

DRUGS (2)
  1. PREDNISONE [Suspect]
     Indication: ILL-DEFINED DISORDER
  2. ASPARAGINASE (ASPARAGINASE) [Suspect]
     Indication: ILL-DEFINED DISORDER

REACTIONS (7)
  - ASCITES [None]
  - DISSEMINATED INTRAVASCULAR COAGULATION [None]
  - PANCREATIC INSUFFICIENCY [None]
  - PANCREATITIS ACUTE [None]
  - PLEURAL EFFUSION [None]
  - PSEUDOCYST [None]
  - SHOCK [None]
